FAERS Safety Report 5893290-X (Version None)
Quarter: 2008Q3

REPORT INFORMATION
  Report Type: 
  Country: None (occurrence: None)
  Receive Date: 20080922
  Receipt Date: 20080922
  Transmission Date: 20090109
  Serious: Yes (Hospitalization)
  Sender: FDA-Public Use
  Company Number: None

PATIENT
  Sex: Male
  Weight: 94.8 kg

DRUGS (3)
  1. SUNITINIB [Suspect]
     Indication: RENAL CELL CARCINOMA
     Dosage: 50 MG DAILY PO
     Route: 048
     Dates: start: 20080130, end: 20080622
  2. COLACE [Concomitant]
  3. FERROUS SULFATE [Concomitant]

REACTIONS (2)
  - POST PROCEDURAL INFECTION [None]
  - URINARY TRACT INFECTION [None]
